FAERS Safety Report 8610296-8 (Version None)
Quarter: 2012Q3

REPORT INFORMATION
  Report Type: 
  Country: None (occurrence: None)
  Receive Date: 20120822
  Receipt Date: 20120815
  Transmission Date: 20120928
  Serious: Yes (Hospitalization, Other)
  Sender: FDA-Public Use
  Company Number: PHFR2012IE001952

PATIENT
  Sex: Female

DRUGS (6)
  1. DIAZEPAM [Concomitant]
     Indication: ANXIETY
     Dosage: 2 MG, BID
     Route: 048
  2. FLUOXETINE HCL [Concomitant]
     Indication: AFFECTIVE DISORDER
     Dosage: 60 MG, UNK
     Route: 048
  3. VALPROIC ACID [Concomitant]
     Indication: AFFECTIVE DISORDER
     Dosage: 1000 MG
     Route: 048
  4. SPIRIVA [Concomitant]
     Indication: CHRONIC OBSTRUCTIVE PULMONARY DISEASE
     Dosage: 18 MCG
     Route: 048
  5. CLOZARIL [Suspect]
     Indication: SCHIZOPHRENIA
     Dosage: 400 MG, (150 MG MANE AND 250 MG NOCTE)
     Route: 048
     Dates: start: 20020510
  6. ARIPIPRAZOLE [Concomitant]
     Indication: PSYCHOTIC DISORDER
     Dosage: 10 MG, UNK

REACTIONS (7)
  - LUNG NEOPLASM [None]
  - HAEMOGLOBIN DECREASED [None]
  - NON-SMALL CELL LUNG CANCER [None]
  - DYSPNOEA [None]
  - LOWER RESPIRATORY TRACT INFECTION [None]
  - COUGH [None]
  - WHITE BLOOD CELL COUNT DECREASED [None]
